FAERS Safety Report 25037592 (Version 2)
Quarter: 2025Q3

REPORT INFORMATION
  Report Type: Report from Study
  Country: EU (occurrence: EU)
  Receive Date: 20250304
  Receipt Date: 20250810
  Transmission Date: 20251020
  Serious: Yes (Hospitalization, Other)
  Sender: ALEXION PHARMACEUTICALS
  Company Number: EU-ASTRAZENECA-202502GLO022014DE

PATIENT
  Age: 78 Year
  Sex: Female
  Weight: 70 kg

DRUGS (10)
  1. DURVALUMAB [Suspect]
     Active Substance: DURVALUMAB
     Indication: Hepatocellular carcinoma
     Dates: start: 20241126, end: 20241126
  2. DURVALUMAB [Suspect]
     Active Substance: DURVALUMAB
     Dates: start: 20250106, end: 20250106
  3. CISPLATIN [Suspect]
     Active Substance: CISPLATIN
     Indication: Hepatocellular carcinoma
     Dates: start: 20241126, end: 20241126
  4. CISPLATIN [Suspect]
     Active Substance: CISPLATIN
     Dates: start: 20241203, end: 20241203
  5. CISPLATIN [Suspect]
     Active Substance: CISPLATIN
     Dates: start: 20250106, end: 20250106
  6. CISPLATIN [Suspect]
     Active Substance: CISPLATIN
     Dates: start: 20250114, end: 20250114
  7. GEMCITABINE [Suspect]
     Active Substance: GEMCITABINE
     Indication: Hepatocellular carcinoma
     Dates: start: 20241126, end: 20241126
  8. GEMCITABINE [Suspect]
     Active Substance: GEMCITABINE
     Dates: start: 20241203, end: 20241203
  9. GEMCITABINE [Suspect]
     Active Substance: GEMCITABINE
     Dates: start: 20250106, end: 20250106
  10. GEMCITABINE [Suspect]
     Active Substance: GEMCITABINE
     Dates: start: 20250114, end: 20250114

REACTIONS (2)
  - Liver abscess [Recovered/Resolved]
  - Bronchitis [Recovered/Resolved]

NARRATIVE: CASE EVENT DATE: 20250201
